FAERS Safety Report 21423830 (Version 1)
Quarter: 2022Q4

REPORT INFORMATION
  Report Type: Spontaneous
  Country: US (occurrence: None)
  Receive Date: 20221006
  Receipt Date: 20221006
  Transmission Date: 20230113
  Serious: Yes (Hospitalization)
  Sender: FDA-Public Use
  Company Number: None

PATIENT
  Age: 76 Year
  Sex: Male

DRUGS (1)
  1. CAPECITABINE [Suspect]
     Active Substance: CAPECITABINE
     Dosage: 2100MG OTHER ORAL
     Route: 048

REACTIONS (3)
  - Lethargy [None]
  - Memory impairment [None]
  - Therapy cessation [None]

NARRATIVE: CASE EVENT DATE: 20221006
